FAERS Safety Report 19919997 (Version 9)
Quarter: 2022Q3

REPORT INFORMATION
  Report Type: Spontaneous
  Country: US (occurrence: US)
  Receive Date: 20211005
  Receipt Date: 20220714
  Transmission Date: 20221026
  Serious: Yes (Hospitalization)
  Sender: FDA-Public Use
  Company Number: US-BIOVITRUM-2021US8663

PATIENT
  Sex: Male

DRUGS (4)
  1. KINERET [Suspect]
     Active Substance: ANAKINRA
     Indication: Rheumatoid arthritis
     Dates: start: 20210306
  2. KINERET [Suspect]
     Active Substance: ANAKINRA
     Indication: Gout
     Dates: start: 202103
  3. KINERET [Suspect]
     Active Substance: ANAKINRA
     Dates: start: 2019
  4. KINERET [Suspect]
     Active Substance: ANAKINRA
     Dates: start: 20201208, end: 20220414

REACTIONS (7)
  - Serotonin syndrome [Unknown]
  - Localised infection [Not Recovered/Not Resolved]
  - Immune system disorder [Unknown]
  - Infection [Unknown]
  - Dehydration [Unknown]
  - Product dose omission issue [Unknown]
  - Off label use [Unknown]

NARRATIVE: CASE EVENT DATE: 20190101
